FAERS Safety Report 8747096 (Version 2)
Quarter: 2013Q2

REPORT INFORMATION
  Report Type: Report from Study
  Country: CA (occurrence: CA)
  Receive Date: 20120827
  Receipt Date: 20130423
  Transmission Date: 20140414
  Serious: Yes (Life-Threatening, Hospitalization, Disabling, Other)
  Sender: FDA-Public Use
  Company Number: CA-JNJFOC-20120810471

PATIENT
  Age: 60 Year
  Sex: Female
  Weight: 107 kg

DRUGS (7)
  1. REMICADE [Suspect]
     Indication: RHEUMATOID ARTHRITIS
     Route: 042
     Dates: start: 20020828, end: 20120820
  2. PREDNISONE [Concomitant]
     Route: 048
  3. BENADRYL [Concomitant]
     Indication: PREMEDICATION
     Route: 048
  4. METHOTREXATE [Concomitant]
     Dosage: 8 TABS
     Route: 048
     Dates: start: 1997
  5. FOLIC ACID [Concomitant]
     Route: 048
     Dates: start: 1997
  6. ALTACE [Concomitant]
     Route: 048
  7. HYDROCHLOROTHIAZIDE [Concomitant]
     Route: 048

REACTIONS (4)
  - Brain abscess [Recovering/Resolving]
  - Blindness unilateral [Unknown]
  - Migraine [Unknown]
  - Masked facies [Unknown]
